FAERS Safety Report 12540394 (Version 3)
Quarter: 2016Q3

REPORT INFORMATION
  Report Type: Spontaneous
  Country: US (occurrence: US)
  Receive Date: 20160708
  Receipt Date: 20160816
  Transmission Date: 20161109
  Serious: No
  Sender: FDA-Public Use
  Company Number: US-PFIZER INC-2016286203

PATIENT
  Age: 44 Year
  Sex: Male

DRUGS (4)
  1. GLIPIZIDE. [Concomitant]
     Active Substance: GLIPIZIDE
     Indication: DIABETES MELLITUS
     Dosage: UNK
     Dates: end: 20160603
  2. NEURONTIN [Suspect]
     Active Substance: GABAPENTIN
     Indication: FIBROMYALGIA
     Dosage: 1500 MG, DAILY
     Route: 048
     Dates: start: 20160513
  3. NIFEDIPINE XR [Concomitant]
     Indication: HYPERTENSION
     Dosage: UNK
     Dates: end: 20160503
  4. NEURONTIN [Suspect]
     Active Substance: GABAPENTIN
     Indication: PAIN

REACTIONS (3)
  - Oedema [Recovered/Resolved]
  - Product use issue [Unknown]
  - Fluid retention [Recovered/Resolved]
